FAERS Safety Report 6160379-X (Version None)
Quarter: 2009Q2

REPORT INFORMATION
  Report Type: 
  Country: None (occurrence: None)
  Receive Date: 20090420
  Receipt Date: 20090413
  Transmission Date: 20091009
  Serious: Yes (Other)
  Sender: FDA-Public Use
  Company Number: US-ELI_LILLY_AND_COMPANY-US200904002495

PATIENT
  Sex: Female

DRUGS (15)
  1. HUMALOG [Suspect]
     Dosage: UNK, UNK
     Dates: start: 20090301
  2. LANTUS [Concomitant]
  3. PROCARDIA [Concomitant]
  4. ALTACE [Concomitant]
  5. ASPIRIN [Concomitant]
  6. PLAVIX [Concomitant]
  7. LASIX [Concomitant]
  8. CATAPRES /00171101/ [Concomitant]
  9. POTASSIUM CHLORIDE [Concomitant]
  10. DITROPAN [Concomitant]
  11. GLUCOTROL [Concomitant]
  12. GLUCOPHAGE [Concomitant]
  13. IMDUR [Concomitant]
  14. TOPROL-XL [Concomitant]
  15. ZOCOR [Concomitant]

REACTIONS (2)
  - DYSPNOEA [None]
  - OEDEMA PERIPHERAL [None]
